FAERS Safety Report 6611869-4 (Version None)
Quarter: 2010Q1

REPORT INFORMATION
  Report Type: 
  Country: None (occurrence: None)
  Receive Date: 20100303
  Receipt Date: 20100224
  Transmission Date: 20100710
  Serious: Yes (Hospitalization)
  Sender: FDA-Public Use
  Company Number: JP-PFIZER INC-2009291548

PATIENT
  Age: 81 Year
  Sex: Male

DRUGS (4)
  1. ATARAX [Suspect]
     Indication: AMNESIA
     Dosage: 1 DF, 1X/DAY
     Route: 048
     Dates: start: 20090416, end: 20090423
  2. TANDOSPIRONE CITRATE [Concomitant]
     Indication: AMNESIA
     Route: 048
     Dates: start: 20090416
  3. GLUCOSAMINE [Concomitant]
     Route: 048
     Dates: start: 20090423
  4. CHONDROITIN [Concomitant]
     Route: 048
     Dates: start: 20090423

REACTIONS (3)
  - GENERALISED ERYTHEMA [None]
  - PSORIASIS [None]
  - PYREXIA [None]
